FAERS Safety Report 9728814 (Version 1)
Quarter: 2013Q4

REPORT INFORMATION
  Report Type: Spontaneous
  Country: US (occurrence: US)
  Receive Date: 20131204
  Receipt Date: 20131204
  Transmission Date: 20140711
  Serious: No
  Sender: FDA-Public Use
  Company Number: US-BIOGENIDEC-2013BI095571

PATIENT
  Sex: Male

DRUGS (1)
  1. TECFIDERA [Suspect]
     Indication: PRODUCT USED FOR UNKNOWN INDICATION

REACTIONS (6)
  - Hypoaesthesia [Recovered/Resolved]
  - Drug ineffective [Unknown]
  - Mobility decreased [Unknown]
  - Flushing [Unknown]
  - Pruritus [Recovered/Resolved]
  - Abdominal discomfort [Recovered/Resolved]
